FAERS Safety Report 9434494 (Version 2)
Quarter: 2013Q3

REPORT INFORMATION
  Report Type: Report from Study
  Country: JP (occurrence: JP)
  Receive Date: 20130801
  Receipt Date: 20130809
  Transmission Date: 20140515
  Serious: Yes (Hospitalization)
  Sender: FDA-Public Use
  Company Number: JP-ROCHE-1253631

PATIENT
  Age: 80 Year
  Sex: Male
  Weight: 63 kg

DRUGS (11)
  1. TOCILIZUMAB [Suspect]
     Indication: RHEUMATOID ARTHRITIS
     Route: 041
     Dates: start: 20120705
  2. OMEPRAL [Concomitant]
     Indication: GASTRIC ULCER
     Dosage: DOSAGE IS UNCERTAIN.
     Route: 048
  3. PROTECADIN [Concomitant]
     Indication: GASTRIC ULCER
     Dosage: DOSAGE IS UNCERTAIN
     Route: 048
     Dates: end: 20130207
  4. TRAMCET [Concomitant]
     Indication: RHEUMATOID ARTHRITIS
     Dosage: DOSAGE IS UNCERTAIN.
     Route: 048
     Dates: end: 20120731
  5. ALOSENN [Concomitant]
     Indication: CONSTIPATION
     Dosage: DOSAGE IS UNCERTAIN.
     Route: 048
     Dates: end: 20130207
  6. PURSENNID [Concomitant]
     Indication: CONSTIPATION
     Dosage: DOSAGE IS UNCERTAIN.
     Route: 048
     Dates: end: 20130703
  7. ARICEPT [Concomitant]
     Indication: DEPRESSION
     Dosage: DOSAGE IS UNCERTAIN.
     Route: 048
  8. REFLEX (JAPAN) [Concomitant]
     Indication: DEPRESSION
     Dosage: DOSAGE IS UNCERTAIN
     Route: 048
     Dates: end: 20130703
  9. TAKEPRON [Concomitant]
     Indication: GASTRIC ULCER
     Dosage: DOSAGE IS UNCERTAIN.
     Route: 048
     Dates: start: 20130704, end: 20130711
  10. AVAPRO [Concomitant]
     Indication: HYPERTENSION
     Dosage: DOSAGE IS UNCERTAIN.
     Route: 048
     Dates: start: 20130704, end: 20130711
  11. AMLODIN [Concomitant]
     Indication: HYPERTENSION
     Dosage: DOSAGE IS UNCERTAIN.
     Route: 048
     Dates: start: 20130704, end: 20130711

REACTIONS (1)
  - Interstitial lung disease [Recovering/Resolving]
